FAERS Safety Report 21877675 (Version 1)
Quarter: 2023Q1

REPORT INFORMATION
  Report Type: Spontaneous
  Country: US (occurrence: US)
  Receive Date: 20230118
  Receipt Date: 20230118
  Transmission Date: 20230418
  Serious: No
  Sender: FDA-Public Use
  Company Number: US-UROGEN PHARMA LTD.-2022-UGN-000144

PATIENT

DRUGS (7)
  1. JELMYTO [Suspect]
     Active Substance: MITOMYCIN
     Indication: Transitional cell cancer of the renal pelvis and ureter
     Dosage: ONE TIME PER WEEK (INSTILLATION)
     Route: 065
     Dates: start: 202206, end: 202206
  2. JELMYTO [Suspect]
     Active Substance: MITOMYCIN
     Dosage: ONE TIME PER WEEK (INSTILLATION)
     Route: 065
  3. JELMYTO [Suspect]
     Active Substance: MITOMYCIN
     Dosage: ONE TIME PER WEEK (INSTILLATION)
     Route: 065
  4. JELMYTO [Suspect]
     Active Substance: MITOMYCIN
     Dosage: ONE TIME PER WEEK (INSTILLATION)
     Route: 065
  5. JELMYTO [Suspect]
     Active Substance: MITOMYCIN
     Dosage: ONE TIME PER WEEK (INSTILLATION)
     Route: 065
  6. JELMYTO [Suspect]
     Active Substance: MITOMYCIN
     Dosage: ONE TIME PER WEEK (INSTILLATION)
     Route: 065
     Dates: start: 202207, end: 202207
  7. JELMYTO [Suspect]
     Active Substance: MITOMYCIN
     Dosage: UNK (INSTILLATION)
     Route: 065
     Dates: start: 202211, end: 202211

REACTIONS (2)
  - Headache [Unknown]
  - Fatigue [Unknown]

NARRATIVE: CASE EVENT DATE: 20221101
